FAERS Safety Report 9239235 (Version 2)
Quarter: 2013Q2

REPORT INFORMATION
  Report Type: Report from Study
  Country: FR (occurrence: FR)
  Receive Date: 20130418
  Receipt Date: 20130529
  Transmission Date: 20140414
  Serious: Yes (Life-Threatening, Hospitalization)
  Sender: FDA-Public Use
  Company Number: FR-ELI_LILLY_AND_COMPANY-FR201304002975

PATIENT
  Age: 69 Year
  Sex: Male
  Weight: 82 kg

DRUGS (4)
  1. PEMETREXED [Suspect]
     Indication: LUNG NEOPLASM MALIGNANT
     Dosage: UNK
  2. BEVACIZUMAB [Suspect]
     Indication: LUNG NEOPLASM MALIGNANT
     Dosage: 600 MG, EVERY THREE WEEKS
     Route: 042
     Dates: start: 20121226
  3. BEVACIZUMAB [Suspect]
     Dosage: UNK
     Route: 042
     Dates: start: 20130403
  4. CARBOPLATIN [Suspect]
     Indication: LUNG NEOPLASM MALIGNANT

REACTIONS (4)
  - Bone marrow failure [Recovered/Resolved]
  - Bone marrow failure [Recovered/Resolved]
  - Bone marrow failure [Recovered/Resolved]
  - Thrombocytopenia [Recovered/Resolved]
